FAERS Safety Report 21732526 (Version 1)
Quarter: 2022Q4

REPORT INFORMATION
  Report Type: Report from Study
  Country: FR (occurrence: None)
  Receive Date: 20221215
  Receipt Date: 20221215
  Transmission Date: 20230113
  Serious: Yes (Hospitalization)
  Sender: FDA-Public Use
  Company Number: FR-ROCHE-3188914

PATIENT
  Age: 31 Year
  Sex: Female
  Weight: 87 kg

DRUGS (3)
  1. ATEZOLIZUMAB [Suspect]
     Active Substance: ATEZOLIZUMAB
     Indication: Breast cancer metastatic
     Route: 042
     Dates: start: 20220830, end: 20220909
  2. ATEZOLIZUMAB [Suspect]
     Active Substance: ATEZOLIZUMAB
     Route: 042
     Dates: start: 20221018
  3. SKENAN [Concomitant]
     Active Substance: MORPHINE SULFATE

REACTIONS (3)
  - Vascular device infection [Recovered/Resolved]
  - Myocarditis [Recovered/Resolved]
  - Interstitial lung disease [Recovered/Resolved]

NARRATIVE: CASE EVENT DATE: 20220907
